FAERS Safety Report 18595670 (Version 1)
Quarter: 2020Q4

REPORT INFORMATION
  Report Type: Spontaneous
  Country: US (occurrence: US)
  Receive Date: 20201209
  Receipt Date: 20201209
  Transmission Date: 20210114
  Serious: No
  Sender: FDA-Public Use
  Company Number: US-PFIZER INC-2020481615

PATIENT
  Age: 8 Decade
  Sex: Female

DRUGS (1)
  1. PREMARIN [Suspect]
     Active Substance: ESTROGENS, CONJUGATED
     Dosage: 1 G, 2X/WEEK
     Route: 067

REACTIONS (5)
  - Expired product administered [Unknown]
  - Incontinence [Unknown]
  - Off label use [Unknown]
  - Product use issue [Unknown]
  - Uterine prolapse [Unknown]
